FAERS Safety Report 10185617 (Version 1)
Quarter: 2014Q2

REPORT INFORMATION
  Report Type: Spontaneous
  Country: US (occurrence: None)
  Receive Date: 20140520
  Receipt Date: 20140520
  Transmission Date: 20141212
  Serious: Yes (Other)
  Sender: FDA-Public Use
  Company Number: None

PATIENT
  Age: 55 Year
  Sex: Female
  Weight: 80 kg

DRUGS (6)
  1. LEVETIRACETAM 500 MG [Suspect]
     Indication: CONVULSION PROPHYLAXIS
     Route: 042
     Dates: start: 20140421, end: 20140424
  2. BENEDRYL [Concomitant]
  3. DEXAMETHASONE [Concomitant]
  4. MORPHINE [Concomitant]
  5. ONDANSETRON [Concomitant]
  6. PROCHLORPERAZINE [Concomitant]

REACTIONS (1)
  - Hallucination [None]
